FAERS Safety Report 19967385 (Version 1)
Quarter: 2021Q4

REPORT INFORMATION
  Report Type: Spontaneous
  Country: US (occurrence: US)
  Receive Date: 20211014
  Receipt Date: 20211014
  Transmission Date: 20220303
  Serious: No
  Sender: FDA-Public Use
  Company Number: None

PATIENT
  Sex: Female

DRUGS (1)
  1. NEXPLANON [Suspect]
     Active Substance: ETONOGESTREL
     Dosage: OTHER FREQUENCY:EVERY 3 YEARS;
     Route: 058
     Dates: start: 20210728, end: 20210924

REACTIONS (2)
  - Heavy menstrual bleeding [None]
  - Headache [None]
